FAERS Safety Report 22320531 (Version 1)
Quarter: 2023Q2

REPORT INFORMATION
  Report Type: Report from Study
  Country: CA (occurrence: CA)
  Receive Date: 20230515
  Receipt Date: 20230515
  Transmission Date: 20230721
  Serious: Yes (Other)
  Sender: FDA-Public Use
  Company Number: CA-002147023-NVSC2023CA107478

PATIENT
  Age: 61 Year
  Sex: Female

DRUGS (10)
  1. PATADAY [Suspect]
     Active Substance: OLOPATADINE HYDROCHLORIDE
     Indication: Dry eye
     Dosage: 1 DRP, (IN EACH EYE, (ROUTE OF ADMINISTRATION: GGT))
     Route: 065
  2. FENTANYL [Suspect]
     Active Substance: FENTANYL
     Indication: Product used for unknown indication
     Dosage: UNK
     Route: 065
  3. SYMBICORT [Concomitant]
     Active Substance: BUDESONIDE\FORMOTEROL FUMARATE DIHYDRATE
     Indication: Product used for unknown indication
     Dosage: 1 UNK, QD, (200/6, 1 TO 3 TIMES DAILY)
     Route: 065
  4. VENTOLIN [Concomitant]
     Active Substance: ALBUTEROL SULFATE
     Indication: Product used for unknown indication
     Dosage: UNK, (2 PUFFS 1 TO 3 TIMES DAILY)
  5. VENTOLIN [Concomitant]
     Active Substance: ALBUTEROL SULFATE
     Dosage: UNK, QID, (2 PUFFS 4 TO 6 TIMES DAILY)
     Route: 065
  6. FLUTICASONE FUROATE [Concomitant]
     Active Substance: FLUTICASONE FUROATE
     Indication: Product used for unknown indication
     Dosage: UNK
     Route: 065
  7. AZITHROMYCIN [Concomitant]
     Active Substance: AZITHROMYCIN
     Indication: Asthma
     Dosage: UNK
     Route: 065
  8. REACTINE [Concomitant]
     Indication: Product used for unknown indication
     Dosage: UNK
     Route: 065
  9. PREDNISONE [Concomitant]
     Active Substance: PREDNISONE
     Indication: Product used for unknown indication
     Dosage: 50 MG, (FOR 6 DAYS)
     Route: 048
  10. BEPREVE [Concomitant]
     Active Substance: BEPOTASTINE BESILATE
     Indication: Dry eye
     Dosage: 1 DRP, QD, (OPHTHALMIC SOLUTION, ROUTE OF ADMINISTARTION: GGT, OCULAR DROPS,
     Route: 065

REACTIONS (14)
  - Pneumonia [Recovered/Resolved]
  - Chronic spontaneous urticaria [Unknown]
  - Sleep disorder [Unknown]
  - Asthma [Unknown]
  - Dyspnoea [Unknown]
  - Nausea [Unknown]
  - Wheezing [Unknown]
  - Rhinitis allergic [Unknown]
  - Conjunctivitis allergic [Unknown]
  - Eye pruritus [Unknown]
  - Urticaria [Unknown]
  - Dehydration [Unknown]
  - Rash [Unknown]
  - Product use in unapproved indication [Unknown]
